FAERS Safety Report 15043969 (Version 1)
Quarter: 2018Q2

REPORT INFORMATION
  Report Type: Spontaneous
  Country: NO (occurrence: NO)
  Receive Date: 20180621
  Receipt Date: 20180621
  Transmission Date: 20180711
  Serious: Yes (Other)
  Sender: FDA-Public Use
  Company Number: NO-SA-2018SA153778

PATIENT
  Sex: Female

DRUGS (1)
  1. AUBAGIO [Suspect]
     Active Substance: TERIFLUNOMIDE
     Indication: MULTIPLE SCLEROSIS RELAPSE
     Dosage: 14 MG, QD
     Route: 048
     Dates: start: 201611, end: 20180607

REACTIONS (2)
  - Exposure during pregnancy [Unknown]
  - Expanded disability status scale score increased [Unknown]
